FAERS Safety Report 11702643 (Version 2)
Quarter: 2015Q4

REPORT INFORMATION
  Report Type: Spontaneous
  Country: US (occurrence: US)
  Receive Date: 20151105
  Receipt Date: 20151222
  Transmission Date: 20160304
  Serious: No
  Sender: FDA-Public Use
  Company Number: CHPA2015US013104

PATIENT
  Age: 68 Year
  Sex: Female

DRUGS (1)
  1. VOLTAREN [Suspect]
     Active Substance: DICLOFENAC SODIUM
     Indication: FIBROMYALGIA
     Dosage: UNK
     Route: 061
     Dates: start: 20150929, end: 201510

REACTIONS (5)
  - Product use issue [Unknown]
  - Wrong technique in product usage process [Unknown]
  - Therapeutic response unexpected [Unknown]
  - Drug administered at inappropriate site [Unknown]
  - Inappropriate schedule of drug administration [Unknown]

NARRATIVE: CASE EVENT DATE: 20150929
